FAERS Safety Report 7866552-4 (Version None)
Quarter: 2011Q4

REPORT INFORMATION
  Report Type: 
  Country: None (occurrence: None)
  Receive Date: 20111028
  Receipt Date: 20110706
  Transmission Date: 20120403
  Serious: No
  Sender: FDA-Public Use
  Company Number: US-GLAXOSMITHKLINE-A0935125A

PATIENT
  Age: 53 Year
  Sex: Male

DRUGS (6)
  1. XANAX [Concomitant]
  2. ADVAIR DISKUS 100/50 [Suspect]
     Indication: CHRONIC OBSTRUCTIVE PULMONARY DISEASE
     Dosage: 1PUFF TWICE PER DAY
     Route: 055
     Dates: start: 20101001
  3. DOXAZOSIN MESYLATE [Concomitant]
  4. LEXAPRO [Concomitant]
  5. LOVASTATIN [Concomitant]
  6. CARVEDILOL [Concomitant]

REACTIONS (2)
  - COUGH [None]
  - DYSPNOEA [None]
